FAERS Safety Report 5076930-7 (Version None)
Quarter: 2006Q3

REPORT INFORMATION
  Report Type: 
  Country: None (occurrence: None)
  Receive Date: 20060810
  Receipt Date: 20060220
  Transmission Date: 20061208
  Serious: Yes (Other)
  Sender: FDA-Public Use
  Company Number: US-GLAXOSMITHKLINE-A0594407A

PATIENT
  Age: 42 Year
  Sex: Female

DRUGS (7)
  1. PAXIL [Suspect]
     Dosage: 1TSP PER DAY
     Dates: start: 20060201, end: 20060201
  2. PAXIL CR [Suspect]
     Dosage: 12.5MG PER DAY
     Route: 048
     Dates: start: 20020101
  3. LUPRON [Concomitant]
  4. PROGESTERONE [Concomitant]
  5. MEDROL [Concomitant]
  6. ZITHROMAX [Concomitant]
  7. KLONOPIN [Concomitant]

REACTIONS (3)
  - DRUG EXPOSURE DURING PREGNANCY [None]
  - HALLUCINATION [None]
  - HEADACHE [None]
